FAERS Safety Report 7501457-X (Version None)
Quarter: 2011Q2

REPORT INFORMATION
  Report Type: 
  Country: None (occurrence: None)
  Receive Date: 20110524
  Receipt Date: 20110517
  Transmission Date: 20111010
  Serious: Yes (Hospitalization, Other)
  Sender: FDA-Public Use
  Company Number: US-US-EMD SERONO, INC.-7060418

PATIENT
  Sex: Female

DRUGS (2)
  1. REBIF [Suspect]
     Indication: MULTIPLE SCLEROSIS
     Route: 058
     Dates: start: 20110413
  2. ADVIL LIQUI-GELS [Concomitant]
     Indication: PREMEDICATION

REACTIONS (4)
  - MULTIPLE SCLEROSIS RELAPSE [None]
  - INJECTION SITE REACTION [None]
  - INFECTIOUS MONONUCLEOSIS [None]
  - FEELING ABNORMAL [None]
